FAERS Safety Report 23643825 (Version 1)
Quarter: 2024Q1

REPORT INFORMATION
  Report Type: Spontaneous
  Country: US (occurrence: US)
  Receive Date: 20240318
  Receipt Date: 20240318
  Transmission Date: 20240410
  Serious: Yes (Life-Threatening, Hospitalization, Other)
  Sender: FDA-Public Use
  Company Number: US-ABBVIE-5681922

PATIENT
  Age: 17 Year
  Sex: Male
  Weight: 81 kg

DRUGS (3)
  1. BOTULINUM TOXIN TYPE A [Suspect]
     Active Substance: BOTULINUM TOXIN TYPE A
     Indication: Myoclonus
     Dosage: TIME INTERVAL: AS NECESSARY: FORM STRENGTH: 15UNIT
     Route: 065
     Dates: start: 20211215, end: 20211215
  2. BOTULINUM TOXIN TYPE A [Suspect]
     Active Substance: BOTULINUM TOXIN TYPE A
     Indication: Myoclonus
     Dosage: TIME INTERVAL: AS NECESSARY: FORM STRENGTH: 1UNIT
     Route: 030
     Dates: start: 20210601, end: 20210601
  3. BOTULINUM TOXIN TYPE A [Suspect]
     Active Substance: BOTULINUM TOXIN TYPE A
     Indication: Myoclonus
     Dosage: TIME INTERVAL: AS NECESSARY: FORM STRENGTH: 30UNIT
     Route: 030
     Dates: start: 20220125, end: 20220125

REACTIONS (39)
  - Suicide attempt [Not Recovered/Not Resolved]
  - Generalised oedema [Not Recovered/Not Resolved]
  - Head discomfort [Not Recovered/Not Resolved]
  - Postural orthostatic tachycardia syndrome [Not Recovered/Not Resolved]
  - Weight decreased [Not Recovered/Not Resolved]
  - Ear pain [Not Recovered/Not Resolved]
  - Impaired driving ability [Not Recovered/Not Resolved]
  - Vomiting [Recovered/Resolved]
  - Tremor [Not Recovered/Not Resolved]
  - Mast cell activation syndrome [Not Recovered/Not Resolved]
  - Posture abnormal [Not Recovered/Not Resolved]
  - Bladder dysfunction [Not Recovered/Not Resolved]
  - Gait disturbance [Not Recovered/Not Resolved]
  - Muscular weakness [Not Recovered/Not Resolved]
  - Speech disorder [Not Recovered/Not Resolved]
  - Muscle atrophy [Not Recovered/Not Resolved]
  - Chemical burn [Not Recovered/Not Resolved]
  - Off label use [Not Recovered/Not Resolved]
  - Dysphagia [Not Recovered/Not Resolved]
  - Impaired gastric emptying [Not Recovered/Not Resolved]
  - Hyperacusis [Not Recovered/Not Resolved]
  - Memory impairment [Not Recovered/Not Resolved]
  - Constipation [Not Recovered/Not Resolved]
  - Dyspepsia [Not Recovered/Not Resolved]
  - Joint noise [Not Recovered/Not Resolved]
  - Brain injury [Not Recovered/Not Resolved]
  - Ear discomfort [Unknown]
  - Anaphylactic reaction [Not Recovered/Not Resolved]
  - Spinal disorder [Not Recovered/Not Resolved]
  - Hypoacusis [Not Recovered/Not Resolved]
  - Pyrexia [Not Recovered/Not Resolved]
  - Dizziness [Recovering/Resolving]
  - Suicidal ideation [Not Recovered/Not Resolved]
  - Anaphylactic reaction [Not Recovered/Not Resolved]
  - Headache [Not Recovered/Not Resolved]
  - Panic attack [Not Recovered/Not Resolved]
  - Fall [Not Recovered/Not Resolved]
  - Drug hypersensitivity [Not Recovered/Not Resolved]
  - Food allergy [Not Recovered/Not Resolved]

NARRATIVE: CASE EVENT DATE: 20220101
